FAERS Safety Report 5051185-8 (Version None)
Quarter: 2006Q3

REPORT INFORMATION
  Report Type: 
  Country: None (occurrence: None)
  Receive Date: 20060714
  Receipt Date: 20060221
  Transmission Date: 20061208
  Serious: Yes (Hospitalization)
  Sender: FDA-Public Use
  Company Number: PT-RB-2850-2006

PATIENT
  Age: 30 Year
  Sex: Male

DRUGS (3)
  1. BUPRENORPHINE HYDROCHLORIDE [Suspect]
     Route: 060
     Dates: start: 20041114, end: 20050301
  2. BUPRENORPHINE HYDROCHLORIDE [Suspect]
     Route: 060
     Dates: start: 20050801
  3. BUPRENORPHINE HYDROCHLORIDE [Suspect]
     Route: 060

REACTIONS (2)
  - OEDEMA PERIPHERAL [None]
  - UNEVALUABLE EVENT [None]
